FAERS Safety Report 8328963-2 (Version None)
Quarter: 2012Q2

REPORT INFORMATION
  Report Type: 
  Country: None (occurrence: None)
  Receive Date: 20120502
  Receipt Date: 20120425
  Transmission Date: 20120825
  Serious: Yes (Hospitalization, Other)
  Sender: FDA-Public Use
  Company Number: US-PURDUE-USA-2012-0083657

PATIENT
  Sex: Female

DRUGS (6)
  1. ESCITALOPRAM OXALATE [Concomitant]
     Indication: ANXIETY
  2. ESCITALOPRAM OXALATE [Concomitant]
     Indication: DEPRESSION
     Dosage: 20 MG, DAILY
     Route: 048
     Dates: start: 20030101
  3. STUDY DRUG [Suspect]
     Indication: CHRONIC OBSTRUCTIVE PULMONARY DISEASE
     Dosage: UNK UNK, BID
     Route: 055
     Dates: start: 20111123, end: 20120130
  4. DILAUDID [Suspect]
     Indication: BACK PAIN
  5. VICODIN [Suspect]
     Indication: BACK PAIN
     Dosage: UNK, SEE TEXT
     Route: 048
  6. PRAVASTATIN [Concomitant]
     Indication: HYPERCHOLESTEROLAEMIA
     Dosage: 20 MG, DAILY
     Route: 048
     Dates: start: 20050101

REACTIONS (2)
  - MULTIPLE DRUG OVERDOSE [None]
  - RESPIRATORY FAILURE [None]
